FAERS Safety Report 9527451 (Version 7)
Quarter: 2021Q4

REPORT INFORMATION
  Report Type: Spontaneous
  Country: FR (occurrence: FR)
  Receive Date: 20130917
  Receipt Date: 20211109
  Transmission Date: 20220304
  Serious: Yes (Life-Threatening, Hospitalization, Other)
  Sender: FDA-Public Use
  Company Number: FR-RANBAXY-2013R1-73138

PATIENT
  Age: 31 Year
  Sex: Female

DRUGS (34)
  1. CIPROFLOXACIN [Suspect]
     Active Substance: CIPROFLOXACIN
     Indication: Pseudomonas infection
     Dosage: UNK
     Route: 065
  2. FOSFOMYCIN [Suspect]
     Active Substance: FOSFOMYCIN
     Indication: Encephalomyelitis
     Dosage: UNK
     Route: 065
  3. FOSFOMYCIN [Suspect]
     Active Substance: FOSFOMYCIN
     Indication: Urinary tract infection
  4. PANTOPRAZOLE [Suspect]
     Active Substance: PANTOPRAZOLE
     Indication: Skin test
     Dosage: UNK
     Route: 065
  5. ACETAMINOPHEN [Suspect]
     Active Substance: ACETAMINOPHEN
     Indication: Product used for unknown indication
     Dosage: UNK
     Route: 065
  6. AZTREONAM [Suspect]
     Active Substance: AZTREONAM
     Indication: Antibiotic therapy
     Dosage: UNK
     Route: 065
  7. AZTREONAM [Suspect]
     Active Substance: AZTREONAM
     Indication: Urinary tract infection
  8. AZTREONAM [Suspect]
     Active Substance: AZTREONAM
     Indication: Enterococcal infection
  9. AZTREONAM [Suspect]
     Active Substance: AZTREONAM
     Indication: Serratia infection
  10. AZTREONAM [Suspect]
     Active Substance: AZTREONAM
     Indication: Meningitis
  11. AZTREONAM [Suspect]
     Active Substance: AZTREONAM
     Indication: Serratia infection
  12. AZTREONAM [Suspect]
     Active Substance: AZTREONAM
     Indication: Enterococcal infection
  13. RIFAMPIN [Suspect]
     Active Substance: RIFAMPIN
     Indication: Enterococcal infection
     Dosage: UNK
     Route: 065
  14. RIFAMPIN [Suspect]
     Active Substance: RIFAMPIN
     Indication: Enterococcal infection
  15. RIFAMPIN [Suspect]
     Active Substance: RIFAMPIN
     Indication: Urinary tract infection
  16. RIFAMPIN [Suspect]
     Active Substance: RIFAMPIN
     Indication: Meningitis
  17. VANCOMYCIN [Suspect]
     Active Substance: VANCOMYCIN
     Indication: Encephalomyelitis
     Dosage: UNK
     Route: 042
  18. VANCOMYCIN [Suspect]
     Active Substance: VANCOMYCIN
     Indication: Meningitis
     Route: 042
  19. GENTAMICIN [Suspect]
     Active Substance: GENTAMICIN
     Dosage: UNK
     Route: 065
  20. GENTAMICIN [Suspect]
     Active Substance: GENTAMICIN
     Indication: Enterococcal infection
     Route: 065
  21. CEFOTAXIME [Suspect]
     Active Substance: CEFOTAXIME SODIUM
     Indication: Product used for unknown indication
     Dosage: UNK
     Route: 065
  22. CIPROFLOXACIN HYDROCHLORIDE [Suspect]
     Active Substance: CIPROFLOXACIN HYDROCHLORIDE
     Indication: Enterococcal infection
     Dosage: UNK
     Route: 065
  23. CIPROFLOXACIN HYDROCHLORIDE [Suspect]
     Active Substance: CIPROFLOXACIN HYDROCHLORIDE
     Indication: Enterococcal infection
  24. COTRIMOXAZOLE [Suspect]
     Active Substance: SULFAMETHOXAZOLE\TRIMETHOPRIM
     Indication: Enterococcal infection
     Dosage: UNK
     Route: 065
  25. COTRIMOXAZOLE [Suspect]
     Active Substance: SULFAMETHOXAZOLE\TRIMETHOPRIM
     Indication: Enterococcal infection
     Route: 065
  26. DAPTOMYCIN [Suspect]
     Active Substance: DAPTOMYCIN
     Indication: Product used for unknown indication
     Dosage: UNK
     Route: 065
  27. DAPTOMYCIN [Suspect]
     Active Substance: DAPTOMYCIN
     Route: 065
  28. SULFAMETHOXAZOLE\TRIMETHOPRIM [Suspect]
     Active Substance: SULFAMETHOXAZOLE\TRIMETHOPRIM
     Indication: Pseudomonas infection
     Dosage: UNK
     Route: 065
  29. SULFAMETHOXAZOLE\TRIMETHOPRIM [Suspect]
     Active Substance: SULFAMETHOXAZOLE\TRIMETHOPRIM
     Indication: Pseudomonas infection
  30. ENOXAPARIN SODIUM [Suspect]
     Active Substance: ENOXAPARIN SODIUM
     Indication: Product used for unknown indication
     Dosage: UNK
     Route: 065
  31. ENOXAPARIN SODIUM [Suspect]
     Active Substance: ENOXAPARIN SODIUM
     Route: 065
  32. LINEZOLID [Suspect]
     Active Substance: LINEZOLID
     Indication: Pseudomonas infection
     Dosage: UNK
     Route: 065
  33. LINEZOLID [Suspect]
     Active Substance: LINEZOLID
     Indication: Enterococcal infection
     Route: 065
  34. LINEZOLID [Suspect]
     Active Substance: LINEZOLID
     Indication: Pseudomonas infection

REACTIONS (23)
  - Drug reaction with eosinophilia and systemic symptoms [Recovered/Resolved with Sequelae]
  - Human herpesvirus 6 infection [Recovering/Resolving]
  - Human herpesvirus 7 infection [Unknown]
  - Epstein-Barr virus infection [Unknown]
  - Eosinophil count increased [Recovering/Resolving]
  - Hepatic cytolysis [Recovered/Resolved]
  - Brain abscess [Recovering/Resolving]
  - Enterococcal infection [Recovering/Resolving]
  - Erythema [Unknown]
  - Skin test positive [Unknown]
  - Purpura [Recovered/Resolved]
  - Dizziness [Unknown]
  - Feeling hot [Recovering/Resolving]
  - Eosinophilia [Recovering/Resolving]
  - Rash [Recovering/Resolving]
  - Malaise [Recovering/Resolving]
  - Oedema peripheral [Recovered/Resolved]
  - Hypotension [Unknown]
  - Condition aggravated [Recovering/Resolving]
  - Hypotension [Recovered/Resolved]
  - Pyrexia [Recovered/Resolved]
  - Drug resistance [Unknown]
  - Epstein-Barr virus test positive [Recovering/Resolving]
